FAERS Safety Report 17543818 (Version 1)
Quarter: 2020Q1

REPORT INFORMATION
  Report Type: Spontaneous
  Country: CA (occurrence: CA)
  Receive Date: 20200316
  Receipt Date: 20200316
  Transmission Date: 20200409
  Serious: Yes (Other)
  Sender: FDA-Public Use
  Company Number: CA-TEVA-2020-CA-1201909

PATIENT
  Age: 56 Year
  Sex: Female
  Weight: 90 kg

DRUGS (2)
  1. HYDROXYCHLOROQUINE SULFATE. [Concomitant]
     Active Substance: HYDROXYCHLOROQUINE SULFATE
     Indication: RHEUMATOID ARTHRITIS
     Route: 065
  2. METHOTREXATE. [Suspect]
     Active Substance: METHOTREXATE
     Indication: RHEUMATOID ARTHRITIS
     Route: 058

REACTIONS (9)
  - Off label use [Unknown]
  - Deafness unilateral [Unknown]
  - Ear discomfort [Unknown]
  - Fatigue [Unknown]
  - Condition aggravated [Unknown]
  - Immunodeficiency [Unknown]
  - Incorrect route of product administration [Unknown]
  - Malaise [Unknown]
  - Herpes zoster [Unknown]
